FAERS Safety Report 9863023 (Version 2)
Quarter: 2014Q2

REPORT INFORMATION
  Report Type: Spontaneous
  Country: US (occurrence: US)
  Receive Date: 20140203
  Receipt Date: 20140424
  Transmission Date: 20141212
  Serious: Yes (Other)
  Sender: FDA-Public Use
  Company Number: US-GILEAD-2014-0093325

PATIENT
  Age: 52 Year
  Sex: Male

DRUGS (1)
  1. LETAIRIS [Suspect]
     Indication: PORTOPULMONARY HYPERTENSION
     Dosage: 10 MG, UNK
     Route: 065
     Dates: start: 20110104, end: 20131202

REACTIONS (4)
  - Liver transplant [Unknown]
  - Lip dry [Recovered/Resolved]
  - Swollen tongue [Unknown]
  - Swelling [Unknown]
